FAERS Safety Report 18343104 (Version 1)
Quarter: 2020Q4

REPORT INFORMATION
  Report Type: Spontaneous
  Country: PL (occurrence: PL)
  Receive Date: 20201005
  Receipt Date: 20201005
  Transmission Date: 20210113
  Serious: Yes (Other)
  Sender: FDA-Public Use
  Company Number: PL-LUPIN PHARMACEUTICALS INC.-2020-06685

PATIENT
  Age: 46 Year
  Sex: Male

DRUGS (10)
  1. CHLOROQUINE. [Concomitant]
     Active Substance: CHLOROQUINE
     Indication: COVID-19
     Dosage: 500 MILLIGRAM
     Route: 065
     Dates: start: 202003
  2. TIAPRIDE [Concomitant]
     Active Substance: TIAPRIDE
     Indication: DELUSIONAL DISORDER, UNSPECIFIED TYPE
     Dosage: UNK (INITIAL DOSAGE NOT STATED AND THEN DOSAGE WAS INCREASED TO 400MG/DAY)
     Route: 065
     Dates: start: 2020
  3. AZITHROMYCIN ANHYDROUS. [Suspect]
     Active Substance: AZITHROMYCIN ANHYDROUS
     Indication: COVID-19
     Dosage: 500 MILLIGRAM (FOR 5 DAYS)
     Route: 065
     Dates: start: 202003
  4. VALPROATE [Concomitant]
     Active Substance: VALPROIC ACID
     Indication: DELUSIONAL DISORDER, UNSPECIFIED TYPE
     Dosage: 1000 MILLIGRAM, QD
     Route: 065
     Dates: start: 202003
  5. LORAZEPAM. [Concomitant]
     Active Substance: LORAZEPAM
     Indication: DELUSIONAL DISORDER, UNSPECIFIED TYPE
     Dosage: UNK (LORAZEPAM IN THE MAXIMUM DOSE OF UP TO 3 MG/D WAS USED TEMPORARILY)
     Route: 065
     Dates: start: 2020
  6. LEVOMEPROMAZINE [Concomitant]
     Active Substance: LEVOMEPROMAZINE
     Route: 065
  7. LEVOMEPROMAZINE [Concomitant]
     Active Substance: LEVOMEPROMAZINE
     Indication: DELUSIONAL DISORDER, UNSPECIFIED TYPE
     Dosage: 250 MILLIGRAM, QD
     Route: 065
     Dates: start: 202003
  8. OLANZAPINE. [Concomitant]
     Active Substance: OLANZAPINE
     Indication: DELUSIONAL DISORDER, UNSPECIFIED TYPE
     Dosage: UNK (INITIAL DOSAGE NOT STATED AND THEN DOSAGE WAS INCREASED TO 20MG/DAY)
     Route: 065
     Dates: start: 2020
  9. VALPROATE [Concomitant]
     Active Substance: VALPROIC ACID
     Dosage: 2000 MILLIGRAM, QD
     Route: 065
  10. CITALOPRAM [Concomitant]
     Active Substance: CITALOPRAM HYDROBROMIDE
     Indication: DELUSIONAL DISORDER, UNSPECIFIED TYPE
     Dosage: 20 MILLIGRAM, QD
     Route: 065
     Dates: start: 202003

REACTIONS (1)
  - Off label use [Unknown]

NARRATIVE: CASE EVENT DATE: 202003
